FAERS Safety Report 7024645-8 (Version None)
Quarter: 2010Q4

REPORT INFORMATION
  Report Type: 
  Country: None (occurrence: None)
  Receive Date: 20101001
  Receipt Date: 20100924
  Transmission Date: 20110411
  Serious: Yes (Hospitalization)
  Sender: FDA-Public Use
  Company Number: FR-JNJFOC-20100907975

PATIENT
  Sex: Female

DRUGS (2)
  1. RISPERDAL [Suspect]
     Indication: PRODUCT USED FOR UNKNOWN INDICATION
     Route: 048
  2. RISPERDAL [Suspect]
     Route: 048

REACTIONS (4)
  - CONDITION AGGRAVATED [None]
  - GALACTORRHOEA [None]
  - HYPERPROLACTINAEMIA [None]
  - TREATMENT NONCOMPLIANCE [None]
